FAERS Safety Report 12047407 (Version 2)
Quarter: 2016Q1

REPORT INFORMATION
  Report Type: Spontaneous
  Country: US (occurrence: US)
  Receive Date: 20160208
  Receipt Date: 20160229
  Transmission Date: 20160526
  Serious: Yes (Other)
  Sender: FDA-Public Use
  Company Number: US-PFIZER INC-2016020373

PATIENT
  Age: 49 Year
  Sex: Female

DRUGS (1)
  1. EFFEXOR XR [Suspect]
     Active Substance: VENLAFAXINE HYDROCHLORIDE
     Indication: DEPRESSION
     Dosage: 75 MG, 3X/DAY (75 MG 3 TIMES A DAY)
     Dates: start: 200003

REACTIONS (3)
  - Blood pressure increased [Not Recovered/Not Resolved]
  - Pain [Unknown]
  - Injury [Unknown]

NARRATIVE: CASE EVENT DATE: 2004
